FAERS Safety Report 8086375-3 (Version None)
Quarter: 2012Q1

REPORT INFORMATION
  Report Type: 
  Country: None (occurrence: None)
  Receive Date: 20120128
  Receipt Date: 20110516
  Transmission Date: 20120608
  Serious: No
  Sender: FDA-Public Use
  Company Number: US-ABBOTT-11P-163-0721964-00

PATIENT
  Age: 43 Year
  Sex: Female

DRUGS (5)
  1. HUMIRA [Suspect]
     Dosage: DOSE INCREASED
  2. PRILOSEC [Concomitant]
     Indication: PRODUCT USED FOR UNKNOWN INDICATION
  3. CLARITIN [Concomitant]
     Indication: PRODUCT USED FOR UNKNOWN INDICATION
  4. ENTECORT [Concomitant]
     Indication: CROHN'S DISEASE
  5. HUMIRA [Suspect]
     Indication: CROHN'S DISEASE
     Dates: start: 20090801, end: 20110410

REACTIONS (8)
  - TOOTHACHE [None]
  - SWELLING [None]
  - PAIN [None]
  - CROHN'S DISEASE [None]
  - ERYTHEMA [None]
  - TOOTH INFECTION [None]
  - PYREXIA [None]
  - INFECTION [None]
